FAERS Safety Report 9262959 (Version 1)
Quarter: 2013Q1

REPORT INFORMATION
  Report Type: Spontaneous
  Country: US (occurrence: None)
  Receive Date: 20121212
  Receipt Date: 20121212
  Transmission Date: 20140127
  Serious: No
  Sender: FDA-Public Use
  Company Number: 1209USA000707

PATIENT
  Sex: Male

DRUGS (3)
  1. PEGINTRON [Suspect]
     Indication: HEPATITIS C
     Route: 058
     Dates: start: 20120801
  2. RIBAVIRIN [Suspect]
     Indication: HEPATITIS C
     Dates: start: 20120801
  3. VICTRELIS [Suspect]
     Indication: HEPATITIS C
     Route: 048
     Dates: start: 20120829

REACTIONS (6)
  - Nasopharyngitis [None]
  - Dysgeusia [None]
  - Nasopharyngitis [None]
  - Influenza like illness [None]
  - Chills [None]
  - White blood cell count decreased [None]
